FAERS Safety Report 19931307 (Version 1)
Quarter: 2021Q4

REPORT INFORMATION
  Report Type: Spontaneous
  Country: US (occurrence: US)
  Receive Date: 20211008
  Receipt Date: 20211008
  Transmission Date: 20220303
  Serious: No
  Sender: FDA-Public Use
  Company Number: US-ELI_LILLY_AND_COMPANY-US202110003055

PATIENT
  Age: 73 Year
  Sex: Female

DRUGS (1)
  1. REYVOW [Suspect]
     Active Substance: LASMIDITAN
     Indication: Product used for unknown indication
     Dosage: 100 MG, UNKNOWN
     Route: 048
     Dates: start: 20211006

REACTIONS (2)
  - Somnolence [Unknown]
  - Nervousness [Unknown]

NARRATIVE: CASE EVENT DATE: 20211006
